FAERS Safety Report 9418628 (Version 2)
Quarter: 2013Q3

REPORT INFORMATION
  Report Type: Spontaneous
  Country: US (occurrence: US)
  Receive Date: 20130725
  Receipt Date: 20130902
  Transmission Date: 20140515
  Serious: No
  Sender: FDA-Public Use
  Company Number: US-B.I. PHARMACEUTICALS,INC./RIDGEFIELD-2013-BI-21506BP

PATIENT
  Age: 80 Year
  Sex: Female
  Weight: 49.9 kg

DRUGS (5)
  1. COMBIVENT [Suspect]
     Indication: CHRONIC OBSTRUCTIVE PULMONARY DISEASE
     Dosage: DOSE PER APPLICATION:20 MCG / 100 MCG; DAILY DOSE: 80 MCG/ 400 MCG
     Route: 055
  2. ADVAIR [Concomitant]
     Indication: CHRONIC OBSTRUCTIVE PULMONARY DISEASE
     Dosage: STRENGTH/DAILY DOSE: 250/50 1 PUFF BID
     Route: 055
  3. ASPIRIN [Concomitant]
     Dosage: 81 MG
  4. OXYGEN [Concomitant]
     Indication: CHRONIC OBSTRUCTIVE PULMONARY DISEASE
     Dosage: 4 LITERS CONT.
  5. COMBIVENT [Concomitant]
     Indication: CHRONIC OBSTRUCTIVE PULMONARY DISEASE
     Dosage: 18MCG/103MCG 1 PUFF

REACTIONS (1)
  - Overdose [Recovered/Resolved]
